FAERS Safety Report 19220715 (Version 1)
Quarter: 2021Q2

REPORT INFORMATION
  Report Type: Report from Study
  Country: CZ (occurrence: CZ)
  Receive Date: 20210505
  Receipt Date: 20210505
  Transmission Date: 20210717
  Serious: Yes (Death, Other)
  Sender: FDA-Public Use
  Company Number: CZ-PFIZER INC-2021490156

PATIENT

DRUGS (2)
  1. DOXORUBICIN HCL [Suspect]
     Active Substance: DOXORUBICIN HYDROCHLORIDE
     Indication: OSTEOSARCOMA
     Dosage: UNK, CYCLIC
  2. MIFAMURTIDE [Concomitant]
     Active Substance: MIFAMURTIDE
     Indication: OSTEOSARCOMA
     Dosage: 2 MG/M2, CYCLIC (1?HOUR INFUSION)
     Route: 042

REACTIONS (1)
  - Cardiotoxicity [Fatal]
